FAERS Safety Report 8766315 (Version 1)
Quarter: 2012Q4

REPORT INFORMATION
  Report Type: 
  Country: FR (occurrence: FR)
  Receive Date: 20120904
  Receipt Date: 20120904
  Transmission Date: 20130627
  Serious: Yes (Other)
  Sender: FDA-Public Use
  Company Number: PHHY2012FR074043

PATIENT
  Age: 57 Year
  Sex: Male

DRUGS (5)
  1. TRIAMCINOLONE [Suspect]
     Indication: CHRONIC OBSTRUCTIVE PULMONARY DISEASE
  2. FLUTICASONE [Interacting]
     Indication: CHRONIC OBSTRUCTIVE PULMONARY DISEASE
  3. RITONAVIR [Interacting]
  4. SALMETEROL [Concomitant]
     Indication: CHRONIC OBSTRUCTIVE PULMONARY DISEASE
  5. EMTRICITABINE [Concomitant]

REACTIONS (2)
  - Hepatitis B [Recovering/Resolving]
  - Drug interaction [Unknown]
